FAERS Safety Report 10357554 (Version 1)
Quarter: 2014Q3

REPORT INFORMATION
  Report Type: Spontaneous
  Country: US (occurrence: None)
  Receive Date: 20140730
  Receipt Date: 20140730
  Transmission Date: 20150326
  Serious: Yes (Other)
  Sender: FDA-Public Use
  Company Number: None

PATIENT
  Sex: Female
  Weight: 70.31 kg

DRUGS (21)
  1. NITROFURANTOIN MONOHYDRATE [Suspect]
     Active Substance: NITROFURANTOIN MONOHYDRATE
     Indication: URINARY TRACT INFECTION
     Dosage: 2 PILLS
     Route: 048
     Dates: start: 20140701, end: 20140702
  2. VITAMIN C 250 [Concomitant]
  3. POTASSIUM CHLORIDE. [Concomitant]
     Active Substance: POTASSIUM CHLORIDE
  4. ELIQUIS [Concomitant]
     Active Substance: APIXABAN
  5. MAGNESIUM [Concomitant]
     Active Substance: MAGNESIUM
  6. PROPAFENONE HCL [Concomitant]
     Active Substance: PROPAFENONE HYDROCHLORIDE
  7. SIMVASTIN [Concomitant]
     Active Substance: SIMVASTATIN
  8. DIGOXIN. [Concomitant]
     Active Substance: DIGOXIN
  9. LEVOTHYROXIN [Concomitant]
     Active Substance: LEVOTHYROXINE
  10. OMEGA 3 FISH OIL [Concomitant]
     Active Substance: FISH OIL\OMEGA-3 FATTY ACIDS
  11. COQ10 [Concomitant]
     Active Substance: UBIDECARENONE
  12. VALSARTA/HC4 [Concomitant]
  13. MULTIVITAMIN CENTRUM SILVER [Concomitant]
  14. OXYBUTINYNIN [Concomitant]
  15. CENTRUM SILVER FOR WOMEN^S [Concomitant]
  16. TRADJENTA [Concomitant]
     Active Substance: LINAGLIPTIN
  17. AMITRIPTILINE [Concomitant]
  18. SENNA(LAXATIVE) [Concomitant]
  19. KLONAPIN(CLONAZAPAM [Concomitant]
  20. ACCUPRIL [Concomitant]
     Active Substance: QUINAPRIL HYDROCHLORIDE
  21. LANTUS SOLASTAR INSULIN [Concomitant]

REACTIONS (1)
  - Blood glucose increased [None]
